FAERS Safety Report 8831420 (Version 2)
Quarter: 2012Q4

REPORT INFORMATION
  Report Type: Report from Study
  Country: US (occurrence: US)
  Receive Date: 20121009
  Receipt Date: 20121120
  Transmission Date: 20130627
  Serious: Yes (Hospitalization, Other)
  Sender: FDA-Public Use
  Company Number: US-ABBOTT-12P-163-0989521-00

PATIENT
  Age: 61 None
  Sex: Male

DRUGS (3)
  1. HUMIRA [Suspect]
     Indication: PSORIASIS
     Dates: start: 20101104
  2. CRESTOR [Concomitant]
     Indication: BLOOD CHOLESTEROL
  3. LOVAZA [Concomitant]
     Indication: BLOOD TRIGLYCERIDES

REACTIONS (5)
  - Gastrointestinal dysplasia [Recovering/Resolving]
  - Injection site pain [Unknown]
  - Liquid product physical issue [Unknown]
  - Incorrect dose administered [Unknown]
  - Device malfunction [Unknown]
